FAERS Safety Report 25638857 (Version 1)
Quarter: 2025Q3

REPORT INFORMATION
  Report Type: Spontaneous
  Country: US (occurrence: US)
  Receive Date: 20250804
  Receipt Date: 20250804
  Transmission Date: 20251021
  Serious: Yes (Hospitalization, Other)
  Sender: MYLAN
  Company Number: US-MYLANLABS-2025M1065031

PATIENT
  Age: 70 Year
  Sex: Female

DRUGS (3)
  1. ESTRADIOL TRANSDERMAL SYSTEM [Suspect]
     Active Substance: ESTRADIOL
     Indication: Osteoporosis prophylaxis
     Dosage: 0.15 MILLIGRAM, BIWEEKLY (TWICE A WEEK TWO PATCHES AT A TIME 0.1 MG)
  2. ESTRADIOL TRANSDERMAL SYSTEM [Suspect]
     Active Substance: ESTRADIOL
     Indication: Osteoporosis prophylaxis
     Dosage: 0.15 MILLIGRAM, BIWEEKLY (TWICE A WEEK TWO PATCHES AT A TIME 0.05 MG)
  3. ESTRADIOL TRANSDERMAL SYSTEM [Suspect]
     Active Substance: ESTRADIOL
     Indication: Osteoporosis prophylaxis
     Dosage: 0.15 MILLIGRAM, BIWEEKLY (TWICE A WEEK, 0.075 MG TWO PATCHES AT A TIME)

REACTIONS (5)
  - Plasma cell myeloma [Unknown]
  - Renal failure [Unknown]
  - Vomiting [Unknown]
  - Respiratory disorder [Unknown]
  - Wrong technique in product usage process [Unknown]

NARRATIVE: CASE EVENT DATE: 20250101
